FAERS Safety Report 4720207-3 (Version None)
Quarter: 2005Q3

REPORT INFORMATION
  Report Type: 
  Country: None (occurrence: None)
  Receive Date: 20050721
  Receipt Date: 20041214
  Transmission Date: 20060218
  Serious: Yes (Disabling, Other)
  Sender: FDA-Public Use
  Company Number: PHEH2004US13407

PATIENT
  Age: 55 Year
  Sex: Male
  Weight: 98 kg

DRUGS (12)
  1. ACTIQ [Concomitant]
     Indication: PAIN
  2. ADVIL [Concomitant]
     Dosage: UNK, PRN
  3. AREDIA [Suspect]
     Indication: MULTIPLE MYELOMA
     Dosage: 90 MG/ Q4WK
     Dates: start: 19980301, end: 20040924
  4. DEXAMETHASONE [Concomitant]
     Indication: MULTIPLE MYELOMA
     Dosage: 40MG QDX 4DAYS REPEAT Q4WK
     Dates: start: 20030603, end: 20040924
  5. ELAVIL [Concomitant]
     Indication: DEPRESSION
     Dosage: 25 MG, QD
     Dates: start: 20030603
  6. LIPITOR [Concomitant]
     Indication: HYPERCHOLESTEROLAEMIA
     Dosage: 20 MG, QD
     Dates: start: 20040701
  7. ATIVAN [Concomitant]
     Indication: ANXIETY
     Dosage: 1 MG, PRN
     Dates: start: 20030901
  8. AMBIEN [Concomitant]
  9. PROSOM [Concomitant]
  10. PERCODAN [Concomitant]
     Indication: PAIN
     Dosage: 1-2 TABS Q6H PRN
     Dates: start: 20030603
  11. THALIDOMIDE [Concomitant]
     Indication: MULTIPLE MYELOMA
     Dosage: 200 MG, QD
     Dates: start: 20030418, end: 20030603
  12. THALIDOMIDE [Concomitant]
     Dosage: 100 MG, QD
     Dates: end: 20030603

REACTIONS (18)
  - ACTINOMYCOSIS [None]
  - ACTIVITIES OF DAILY LIVING IMPAIRED [None]
  - BONE DISORDER [None]
  - BONE FORMATION INCREASED [None]
  - BUCCAL MUCOSAL ROUGHENING [None]
  - FATIGUE [None]
  - FUNGAL INFECTION [None]
  - IMPAIRED HEALING [None]
  - INFLAMMATION [None]
  - NECK PAIN [None]
  - ORAL PAIN [None]
  - ORAL SURGERY [None]
  - OSTEONECROSIS [None]
  - SEQUESTRECTOMY [None]
  - SOFT TISSUE DISORDER [None]
  - SWELLING [None]
  - TENDERNESS [None]
  - WOUND DEBRIDEMENT [None]
